FAERS Safety Report 5617284-4 (Version None)
Quarter: 2008Q1

REPORT INFORMATION
  Report Type: 
  Country: None (occurrence: None)
  Receive Date: 20080207
  Receipt Date: 20070710
  Transmission Date: 20080703
  Serious: No
  Sender: FDA-Public Use
  Company Number: A0662839A

PATIENT
  Age: 30 Year
  Sex: Female

DRUGS (2)
  1. PAROXETINE [Suspect]
     Indication: DEPRESSION
     Dosage: 20MG PER DAY
     Route: 048
     Dates: start: 20070418, end: 20070617
  2. RISPERDAL [Concomitant]

REACTIONS (14)
  - ABNORMAL DREAMS [None]
  - AGITATION [None]
  - ANGER [None]
  - ANOREXIA [None]
  - ANXIETY [None]
  - DRY MOUTH [None]
  - DYSPNOEA [None]
  - ELECTRIC SHOCK [None]
  - HEADACHE [None]
  - INSOMNIA [None]
  - IRRITABILITY [None]
  - MYOCLONUS [None]
  - PALPITATIONS [None]
  - PARAESTHESIA [None]
